FAERS Safety Report 10996901 (Version 7)
Quarter: 2015Q4

REPORT INFORMATION
  Report Type: Spontaneous
  Country: US (occurrence: US)
  Receive Date: 20150408
  Receipt Date: 20151130
  Transmission Date: 20160304
  Serious: Yes (Other)
  Sender: FDA-Public Use
  Company Number: US-JNJFOC-20150218168

PATIENT
  Age: 50 Year
  Sex: Male
  Weight: 97.07 kg

DRUGS (2)
  1. UNSPECIFIED RISPERIDONE [Suspect]
     Active Substance: RISPERIDONE
     Indication: ADVERSE EVENT
     Route: 048
     Dates: start: 20080710, end: 20131230
  2. RISPERDAL [Suspect]
     Active Substance: RISPERIDONE
     Indication: ADVERSE EVENT
     Route: 048
     Dates: start: 200412, end: 2008

REACTIONS (7)
  - Emotional distress [Unknown]
  - Surgery [Unknown]
  - Fluid retention [Unknown]
  - Adverse reaction [Unknown]
  - Nervousness [Unknown]
  - Agitation [Unknown]
  - Gynaecomastia [Unknown]

NARRATIVE: CASE EVENT DATE: 20131230
